FAERS Safety Report 8171592-4 (Version None)
Quarter: 2012Q1

REPORT INFORMATION
  Report Type: 
  Country: None (occurrence: None)
  Receive Date: 20120113
  Receipt Date: 20110929
  Transmission Date: 20120608
  Serious: No
  Sender: FDA-Public Use
  Company Number: PHEH2011US05406

PATIENT
  Age: 11 Year
  Sex: Male

DRUGS (1)
  1. ILARIS [Suspect]
     Indication: ARTHRALGIA
     Dosage: 180 MG, ONCE IN EVERY 8 WEEKS, SUBCUTANEOUS
     Route: 058
     Dates: start: 20101101, end: 20110924

REACTIONS (5)
  - DIARRHOEA [None]
  - VERTIGO [None]
  - MENTAL DISORDER [None]
  - NAUSEA [None]
  - VOMITING [None]
